FAERS Safety Report 15600480 (Version 1)
Quarter: 2018Q4

REPORT INFORMATION
  Report Type: Report from Study
  Country: ES (occurrence: ES)
  Receive Date: 20181109
  Receipt Date: 20181109
  Transmission Date: 20190205
  Serious: Yes (Life-Threatening, Hospitalization)
  Sender: FDA-Public Use
  Company Number: ES-ACCORD-091279

PATIENT
  Age: 13 Year
  Sex: Male
  Weight: 38.3 kg

DRUGS (5)
  1. RITUXIMAB. [Interacting]
     Active Substance: RITUXIMAB
     Indication: BURKITT^S LYMPHOMA
     Route: 042
     Dates: start: 20160426, end: 20160429
  2. METHOTREXATE. [Suspect]
     Active Substance: METHOTREXATE
     Indication: BURKITT^S LYMPHOMA
     Route: 042
     Dates: start: 20160426, end: 20160429
  3. DOXORUBICIN [Interacting]
     Active Substance: DOXORUBICIN
     Indication: BURKITT^S LYMPHOMA
     Route: 042
     Dates: start: 20160426, end: 20160429
  4. VINCRISTINE [Interacting]
     Active Substance: VINCRISTINE
     Indication: BURKITT^S LYMPHOMA
     Route: 042
     Dates: start: 20160426, end: 20160428
  5. CYCLOPHOSPHAMIDE/CYCLOPHOSPHAMIDE MONOHYDRATE [Interacting]
     Active Substance: CYCLOPHOSPHAMIDE
     Indication: BURKITT^S LYMPHOMA
     Route: 042
     Dates: start: 20160426, end: 20160502

REACTIONS (3)
  - Febrile neutropenia [Recovered/Resolved]
  - Drug interaction [Unknown]
  - Stomatitis [Recovered/Resolved]

NARRATIVE: CASE EVENT DATE: 20160507
